FAERS Safety Report 5664568-X (Version None)
Quarter: 2008Q1

REPORT INFORMATION
  Report Type: 
  Country: None (occurrence: None)
  Receive Date: 20080314
  Receipt Date: 20080307
  Transmission Date: 20080703
  Serious: Yes (Disabling, Other)
  Sender: FDA-Public Use
  Company Number: US-JNJFOC-20080104743

PATIENT
  Sex: Female
  Weight: 63.5 kg

DRUGS (3)
  1. SPORANOX [Suspect]
     Indication: FUNGAL INFECTION
     Route: 048
  2. PREMARIN [Concomitant]
     Indication: HORMONE REPLACEMENT THERAPY
     Route: 048
  3. ALLEGRA [Concomitant]
     Indication: MULTIPLE ALLERGIES
     Route: 048

REACTIONS (2)
  - BALANCE DISORDER [None]
  - NEUROPATHY PERIPHERAL [None]
